FAERS Safety Report 9737218 (Version 2)
Quarter: 2014Q1

REPORT INFORMATION
  Report Type: Report from Study
  Country: BR (occurrence: BR)
  Receive Date: 20131206
  Receipt Date: 20140201
  Transmission Date: 20141002
  Serious: Yes (Hospitalization, Other)
  Sender: FDA-Public Use
  Company Number: BR-ROCHE-1313530

PATIENT
  Sex: Female
  Weight: 72 kg

DRUGS (4)
  1. MABTHERA [Suspect]
     Indication: RHEUMATOID ARTHRITIS
     Route: 042
     Dates: start: 20120112
  2. AZULFIN [Concomitant]
  3. GLIBENCLAMIDE [Concomitant]
  4. ENALAPRIL [Concomitant]

REACTIONS (3)
  - Syncope [Recovering/Resolving]
  - Arthritis infective [Recovering/Resolving]
  - Arthralgia [Unknown]
